FAERS Safety Report 4961949-4 (Version None)
Quarter: 2006Q2

REPORT INFORMATION
  Report Type: 
  Country: None (occurrence: None)
  Receive Date: 20060404
  Receipt Date: 20060315
  Transmission Date: 20061013
  Serious: Yes (Other)
  Sender: FDA-Public Use
  Company Number: PHBS2006JP04138

PATIENT
  Age: 62 Year
  Sex: Female

DRUGS (3)
  1. METOPIRONE [Suspect]
     Indication: HYPERCORTICOIDISM
     Dosage: 0.5 G/D
     Route: 048
  2. DEXAMETHASONE TAB [Concomitant]
     Dosage: 1 MG/D
  3. DEXAMETHASONE TAB [Concomitant]
     Dosage: 0.25 MG/D

REACTIONS (5)
  - ADRENAL CORTICAL INSUFFICIENCY [None]
  - PNEUMOCYSTIS JIROVECI PNEUMONIA [None]
  - PYREXIA [None]
  - RESPIRATORY DISTRESS [None]
  - RESPIRATORY FAILURE [None]
